FAERS Safety Report 4680548-5 (Version None)
Quarter: 2005Q2

REPORT INFORMATION
  Report Type: 
  Country: None (occurrence: None)
  Receive Date: 20050601
  Receipt Date: 20050512
  Transmission Date: 20051028
  Serious: Yes (Death, Life-Threatening, Other)
  Sender: FDA-Public Use
  Company Number: JP_050506549

PATIENT
  Age: 68 Year
  Sex: Male
  Weight: 51 kg

DRUGS (10)
  1. GEMZAR [Suspect]
     Indication: PANCREATIC CARCINOMA STAGE IV
     Dosage: 1200 MG OTHER
     Route: 050
     Dates: start: 20021017, end: 20021017
  2. NIZATIDINE [Concomitant]
  3. GASTROM (ECABET MONOSODIUM) [Concomitant]
  4. GASMOTIN (MOSAPRIDE CITRATE) [Concomitant]
  5. LENDORM [Concomitant]
  6. SULPERAZON [Concomitant]
  7. URSODIOL [Concomitant]
  8. ZOFRAN [Concomitant]
  9. VOLTAREN [Concomitant]
  10. ZANTAC [Concomitant]

REACTIONS (9)
  - ASCITES [None]
  - BACTERIAL INFECTION [None]
  - BILIARY TRACT INFECTION [None]
  - BONE MARROW DEPRESSION [None]
  - DISSEMINATED INTRAVASCULAR COAGULATION [None]
  - INFLAMMATION [None]
  - LIVER ABSCESS [None]
  - PLEURAL EFFUSION [None]
  - SEPSIS [None]
